FAERS Safety Report 5833083-2 (Version None)
Quarter: 2008Q3

REPORT INFORMATION
  Report Type: 
  Country: None (occurrence: None)
  Receive Date: 20080805
  Receipt Date: 20080717
  Transmission Date: 20090109
  Serious: Yes (Hospitalization)
  Sender: FDA-Public Use
  Company Number: JP-ASTRAZENECA-2008AP05297

PATIENT
  Age: 50 Year
  Sex: Male

DRUGS (1)
  1. OMEPRAL TABLETS [Suspect]
     Indication: DUODENAL ULCER
     Route: 048
     Dates: start: 20080601

REACTIONS (3)
  - HYPONATRAEMIA [None]
  - THIRST [None]
  - WATER INTOXICATION [None]
